FAERS Safety Report 4269172-6 (Version None)
Quarter: 2004Q1

REPORT INFORMATION
  Report Type: 
  Country: None (occurrence: None)
  Receive Date: 20040109
  Receipt Date: 20040105
  Transmission Date: 20041129
  Serious: Yes (Other)
  Sender: FDA-Public Use
  Company Number: NSADSS2002038121

PATIENT
  Age: 49 Year
  Sex: Female
  Weight: 59.8748 kg

DRUGS (10)
  1. REMICADE [Suspect]
     Indication: ANKYLOSING SPONDYLITIS
     Dosage: 300 MG/KG, INTRAVENOUS DRIP
     Route: 041
     Dates: start: 20010725, end: 20020702
  2. REMICADE [Suspect]
  3. REMICADE [Suspect]
  4. REMICADE [Suspect]
  5. REMICADE [Suspect]
  6. REMICADE [Suspect]
  7. REMICADE [Suspect]
  8. REMICADE [Suspect]
  9. METHOTREXATE SODIUM [Concomitant]
  10. FOLIC ACID [Concomitant]

REACTIONS (17)
  - ABDOMINAL PAIN LOWER [None]
  - ALANINE AMINOTRANSFERASE INCREASED [None]
  - ARTHRALGIA [None]
  - ARTHRITIS [None]
  - ASPARTATE AMINOTRANSFERASE INCREASED [None]
  - CONSTIPATION [None]
  - FATIGUE [None]
  - HEPATITIS TOXIC [None]
  - HLA MARKER STUDY [None]
  - JOINT SWELLING [None]
  - LEUKOCYTURIA [None]
  - MENORRHAGIA [None]
  - MICTURITION URGENCY [None]
  - POLLAKIURIA [None]
  - SYNOVITIS [None]
  - URETHRITIS [None]
  - WEIGHT DECREASED [None]
